FAERS Safety Report 22041534 (Version 1)
Quarter: 2023Q1

REPORT INFORMATION
  Report Type: Spontaneous
  Country: US (occurrence: None)
  Receive Date: 20230225
  Receipt Date: 20230225
  Transmission Date: 20230417
  Serious: No
  Sender: FDA-Public Use
  Company Number: None

PATIENT
  Sex: Female
  Weight: 73.03 kg

DRUGS (9)
  1. KISQALI [Suspect]
     Active Substance: RIBOCICLIB
     Indication: Metastases to lung
     Dosage: OTHER FREQUENCY : 21 DAYS ON, 7D OFF;?
     Route: 048
     Dates: end: 20230208
  2. IBRANCE [Suspect]
     Active Substance: PALBOCICLIB
     Indication: Metastases to lung
     Dosage: OTHER FREQUENCY : 21 DAYS ON, 7D OFF;?
     Route: 048
     Dates: start: 20230208
  3. ADEMPAS [Concomitant]
     Active Substance: RIOCIGUAT
  4. BUMEX [Concomitant]
     Active Substance: BUMETANIDE
  5. ELIQUIS [Concomitant]
     Active Substance: APIXABAN
  6. FERROUS SULFATE [Concomitant]
     Active Substance: FERROUS SULFATE
  7. OPSUMIT [Concomitant]
     Active Substance: MACITENTAN
  8. ROSUVASTATIN [Concomitant]
     Active Substance: ROSUVASTATIN
  9. VITAMIN D [Concomitant]
     Active Substance: VITAMIN D NOS

REACTIONS (2)
  - Therapy interrupted [None]
  - Blood test abnormal [None]
